FAERS Safety Report 7851140-6 (Version None)
Quarter: 2011Q4

REPORT INFORMATION
  Report Type: 
  Country: None (occurrence: None)
  Receive Date: 20111024
  Receipt Date: 20111009
  Transmission Date: 20120403
  Serious: Yes (Hospitalization)
  Sender: FDA-Public Use
  Company Number: JP-1187995

PATIENT
  Age: 55 Year
  Sex: Male

DRUGS (2)
  1. WARFARIN SODIUM [Concomitant]
  2. FLUORESCITE [Suspect]
     Indication: ANGIOGRAM RETINA
     Dosage: (500 MG INTRAVENOUS BOLUS)
     Route: 040

REACTIONS (3)
  - ISCHAEMIC HEPATITIS [None]
  - ANAPHYLACTIC SHOCK [None]
  - HEPATIC INFARCTION [None]
